FAERS Safety Report 8816836 (Version 1)
Quarter: 2012Q4

REPORT INFORMATION
  Report Type: Spontaneous
  Country: US (occurrence: None)
  Receive Date: 20121002
  Receipt Date: 20121002
  Transmission Date: 20130627
  Serious: No
  Sender: FDA-Public Use
  Company Number: None

PATIENT
  Sex: Female
  Weight: 68.04 kg

DRUGS (2)
  1. BISOPROLOL [Suspect]
     Indication: HEARTBEATS INCREASED
     Dosage: 1/2 tablet daily
     Dates: start: 20120604, end: 20120715
  2. BISOPROLOL [Suspect]
     Dosage: 1/2 tablet daily
     Dates: start: 20120604, end: 20120715

REACTIONS (4)
  - Nausea [None]
  - Dizziness [None]
  - Product substitution issue [None]
  - Product quality issue [None]
